FAERS Safety Report 5416448-2 (Version None)
Quarter: 2007Q3

REPORT INFORMATION
  Report Type: 
  Country: None (occurrence: None)
  Receive Date: 20070713
  Receipt Date: 20070713
  Transmission Date: 20080115
  Serious: Yes (Other)
  Sender: FDA-Public Use
  Company Number: None

PATIENT
  Age: 74 Year
  Sex: Female
  Weight: 44.4525 kg

DRUGS (1)
  1. HALFLYTELY AND BISACODYL TABLETS PEG-3350 2 LITER ORAL SOL - BRAINTREE [Suspect]
     Dosage: 4 TABS AT ONCE, 1 GLASS ORAL SOL EVERY 10-15 MI PO
     Route: 048
     Dates: start: 20070807, end: 20070807

REACTIONS (6)
  - ABDOMINAL DISTENSION [None]
  - FAECAL INCONTINENCE [None]
  - NAUSEA [None]
  - PAIN [None]
  - RETCHING [None]
  - VOMITING [None]
